FAERS Safety Report 5531508-3 (Version None)
Quarter: 2007Q4

REPORT INFORMATION
  Report Type: 
  Country: None (occurrence: None)
  Receive Date: 20071128
  Receipt Date: 20071114
  Transmission Date: 20080405
  Serious: Yes (Other)
  Sender: FDA-Public Use
  Company Number: A-CH2005-08498

PATIENT
  Age: 67 Year
  Sex: Female
  Weight: 77 kg

DRUGS (4)
  1. ZAVESCA [Suspect]
     Indication: GAUCHER'S DISEASE
     Dosage: 100 MG, QD, ORAL; 100 MG, BID, ORAL; 100 MG, BID, ORAL
     Route: 048
     Dates: start: 20031105, end: 20031201
  2. ZAVESCA [Suspect]
     Indication: GAUCHER'S DISEASE
     Dosage: 100 MG, QD, ORAL; 100 MG, BID, ORAL; 100 MG, BID, ORAL
     Route: 048
     Dates: start: 20040105, end: 20040401
  3. ZAVESCA [Suspect]
     Indication: GAUCHER'S DISEASE
     Dosage: 100 MG, QD, ORAL; 100 MG, BID, ORAL; 100 MG, BID, ORAL
     Route: 048
     Dates: start: 20040901, end: 20041101
  4. ALENDRONATE SODIUM [Concomitant]

REACTIONS (8)
  - BLOOD IMMUNOGLOBULIN M INCREASED [None]
  - DIARRHOEA [None]
  - DRUG HYPERSENSITIVITY [None]
  - HEPATOMEGALY [None]
  - PANCYTOPENIA [None]
  - SPLENOMEGALY [None]
  - TREMOR [None]
  - VIBRATION TEST ABNORMAL [None]
